FAERS Safety Report 18132040 (Version 2)
Quarter: 2020Q3

REPORT INFORMATION
  Report Type: Spontaneous
  Country: US (occurrence: US)
  Receive Date: 20200811
  Receipt Date: 20200909
  Transmission Date: 20201103
  Serious: No
  Sender: FDA-Public Use
  Company Number: US-BIOGEN-2020BI00897155

PATIENT
  Sex: Male

DRUGS (1)
  1. TYSABRI [Suspect]
     Active Substance: NATALIZUMAB
     Indication: MULTIPLE SCLEROSIS
     Route: 065
     Dates: start: 20170927, end: 20180910

REACTIONS (4)
  - Renal function test abnormal [Unknown]
  - Memory impairment [Unknown]
  - Feeling abnormal [Unknown]
  - Urinary tract disorder [Not Recovered/Not Resolved]
